FAERS Safety Report 5653455-9 (Version None)
Quarter: 2008Q1

REPORT INFORMATION
  Report Type: 
  Country: None (occurrence: None)
  Receive Date: 20080306
  Receipt Date: 20080303
  Transmission Date: 20080703
  Serious: Yes (Hospitalization)
  Sender: FDA-Public Use
  Company Number: B0511170A

PATIENT
  Age: 40 Year
  Sex: Male

DRUGS (4)
  1. KIVEXA [Suspect]
  2. EPIVIR [Concomitant]
  3. ZIAGEN [Concomitant]
  4. KALETRA [Concomitant]

REACTIONS (3)
  - BLOOD BILIRUBIN INCREASED [None]
  - HEPATIC FUNCTION ABNORMAL [None]
  - TRANSAMINASES INCREASED [None]
